FAERS Safety Report 7384597-8 (Version None)
Quarter: 2011Q1

REPORT INFORMATION
  Report Type: 
  Country: None (occurrence: None)
  Receive Date: 20110330
  Receipt Date: 20110325
  Transmission Date: 20110831
  Serious: No
  Sender: FDA-Public Use
  Company Number: US-PFIZER INC-2011067411

PATIENT
  Sex: Male

DRUGS (3)
  1. IBUPROFEN [Suspect]
     Dosage: UNK
  2. VIAGRA [Suspect]
     Dosage: 25 MG, AS NEEDED
     Route: 048
     Dates: start: 20110301
  3. VIAGRA [Suspect]
     Indication: ERECTILE DYSFUNCTION
     Dosage: 100 MG, AS NEEDED
     Route: 048
     Dates: start: 20110101

REACTIONS (1)
  - ABDOMINAL DISCOMFORT [None]
